FAERS Safety Report 7542907-2 (Version None)
Quarter: 2011Q2

REPORT INFORMATION
  Report Type: 
  Country: None (occurrence: None)
  Receive Date: 20110613
  Receipt Date: 20110531
  Transmission Date: 20111010
  Serious: Yes (Other)
  Sender: FDA-Public Use
  Company Number: PHHY2011BR48136

PATIENT
  Sex: Female

DRUGS (10)
  1. METOPROLOL SUCCINATE [Suspect]
     Dosage: 2 DF, DAILY (50MG)
  2. ALPRAZOLAM [Concomitant]
     Indication: INSOMNIA
     Dosage: 1 DF, AT NIGHT
     Dates: start: 20110601
  3. ALENDRONATE SODIUM [Concomitant]
     Indication: BONE DISORDER
     Dosage: 1 DF, ONCE WEEKLY IN FAST
  4. PASALIX [Concomitant]
     Dosage: 1 DF, IN THE MORNING
  5. BETAHISTINE HYDROCHLORIDE [Concomitant]
     Indication: LABYRINTHITIS
     Dosage: 2 DF, DAILY
  6. COMBIGAN [Concomitant]
     Indication: INTRAOCULAR PRESSURE INCREASED
     Dosage: ONE DROP IN EACH EYE
  7. METOPROLOL SUCCINATE [Suspect]
     Indication: HYPERTENSION
     Dosage: 1 DF, BID
  8. CALDEA [Concomitant]
     Indication: BLOOD CALCIUM ABNORMAL
     Dosage: 1 DF, ONCE WEEKLY IN FAST
     Dates: start: 20110602
  9. DIOVAN [Suspect]
     Indication: HYPERTENSION
     Dosage: 1 DF, BID
  10. TEBONIN [Concomitant]
     Indication: LABYRINTHITIS
     Dosage: 2 DF, DAILY

REACTIONS (6)
  - HEADACHE [None]
  - RETINAL DISORDER [None]
  - BLOOD PRESSURE INCREASED [None]
  - VISUAL IMPAIRMENT [None]
  - LABYRINTHITIS [None]
  - CATARACT [None]
